FAERS Safety Report 18671224 (Version 3)
Quarter: 2021Q1

REPORT INFORMATION
  Report Type: Spontaneous
  Country: US (occurrence: US)
  Receive Date: 20201228
  Receipt Date: 20210217
  Transmission Date: 20210419
  Serious: Yes (Hospitalization, Other)
  Sender: FDA-Public Use
  Company Number: US-B.I. PHARMACEUTICALS,INC./RIDGEFIELD-2020-BI-071343

PATIENT
  Age: 62 Year
  Sex: Male

DRUGS (1)
  1. MOBIC [Suspect]
     Active Substance: MELOXICAM
     Indication: BACK PAIN
     Dosage: MELOXICAM DAILY OVER THE PAST 6 MONTHS
     Route: 065

REACTIONS (4)
  - Fall [Unknown]
  - Lower gastrointestinal haemorrhage [Unknown]
  - Gastrointestinal disorder [Unknown]
  - Barrett^s oesophagus [Unknown]
